FAERS Safety Report 8195545-5 (Version None)
Quarter: 2012Q1

REPORT INFORMATION
  Report Type: 
  Country: None (occurrence: None)
  Receive Date: 20120308
  Receipt Date: 20120305
  Transmission Date: 20120608
  Serious: Yes (Hospitalization, Other)
  Sender: FDA-Public Use
  Company Number: PHHY2012IT019727

PATIENT
  Sex: Male

DRUGS (3)
  1. ZOMETA [Suspect]
     Indication: PROSTATE CANCER METASTATIC
     Dosage: 4 MG, UNK
     Route: 042
     Dates: start: 20100201, end: 20110501
  2. LEUPROLIDE ACETATE [Concomitant]
  3. CASODEX [Concomitant]
     Dosage: 50 MG, UNK

REACTIONS (4)
  - OSTEONECROSIS OF JAW [None]
  - ABSCESS [None]
  - PURULENT DISCHARGE [None]
  - FISTULA [None]
